FAERS Safety Report 6247958-6 (Version None)
Quarter: 2009Q2

REPORT INFORMATION
  Report Type: 
  Country: None (occurrence: None)
  Receive Date: 20090626
  Receipt Date: 20090624
  Transmission Date: 20091009
  Serious: Yes (Disabling)
  Sender: FDA-Public Use
  Company Number: US-B.I. PHARMACEUTICALS,INC./RIDGEFIELD-2008-BP-17937BP

PATIENT
  Age: 83 Year
  Sex: Female

DRUGS (5)
  1. SPIRIVA [Suspect]
     Indication: CHRONIC OBSTRUCTIVE PULMONARY DISEASE
     Dosage: 18 MCG
     Route: 055
     Dates: start: 20060101
  2. TRIAMTERENE [Concomitant]
     Indication: JOINT SWELLING
  3. PREDNISONE TAB [Concomitant]
     Indication: RHEUMATOID ARTHRITIS
  4. ACIPHEX [Concomitant]
  5. ASPIRIN [Concomitant]

REACTIONS (1)
  - BLINDNESS UNILATERAL [None]
